FAERS Safety Report 25460886 (Version 3)
Quarter: 2025Q3

REPORT INFORMATION
  Report Type: Spontaneous
  Country: IL (occurrence: IL)
  Receive Date: 20250620
  Receipt Date: 20250801
  Transmission Date: 20251021
  Serious: Yes (Other)
  Sender: NOVARTIS
  Company Number: IL-002147023-NVSC2025IL095607

PATIENT
  Age: 20 Year
  Sex: Female

DRUGS (1)
  1. KYMRIAH [Suspect]
     Active Substance: TISAGENLECLEUCEL
     Indication: Acute lymphocytic leukaemia
     Route: 042
     Dates: start: 2020, end: 2020

REACTIONS (2)
  - Acute lymphocytic leukaemia recurrent [Unknown]
  - B-cell aplasia [Not Recovered/Not Resolved]

NARRATIVE: CASE EVENT DATE: 20210801
